FAERS Safety Report 7660479-9 (Version None)
Quarter: 2011Q3

REPORT INFORMATION
  Report Type: 
  Country: None (occurrence: None)
  Receive Date: 20110805
  Receipt Date: 20110728
  Transmission Date: 20111222
  Serious: Yes (Hospitalization, Other)
  Sender: FDA-Public Use
  Company Number: US-ASTRAZENECA-2011SE45476

PATIENT
  Age: 79 Year
  Sex: Male

DRUGS (3)
  1. NOVOLOG [Concomitant]
  2. CRESTOR [Suspect]
     Route: 048
  3. LANTUS [Concomitant]

REACTIONS (5)
  - MACULAR DEGENERATION [None]
  - TYPE 2 DIABETES MELLITUS [None]
  - MYOCARDIAL INFARCTION [None]
  - BLINDNESS [None]
  - CORONARY ARTERY BYPASS [None]
